FAERS Safety Report 19521088 (Version 1)
Quarter: 2021Q3

REPORT INFORMATION
  Report Type: Spontaneous
  Country: AU (occurrence: AU)
  Receive Date: 20210712
  Receipt Date: 20210712
  Transmission Date: 20211014
  Serious: Yes (Other)
  Sender: FDA-Public Use
  Company Number: AU-BAXTER-2021BAX019176

PATIENT
  Age: 69 Year
  Sex: Male
  Weight: 75 kg

DRUGS (5)
  1. PIPERTAZ [Suspect]
     Active Substance: PIPERACILLIN SODIUM\TAZOBACTAM SODIUM
     Indication: OSTEOMYELITIS BACTERIAL
     Dosage: 9 G OVER 24 HOURS BY CONTINUOUS INFUSION, PIPERTAZ SANDOZ
     Route: 042
     Dates: start: 20210623, end: 20210630
  2. CITRATE BUFFER [Suspect]
     Active Substance: SODIUM CITRATE
     Indication: MEDICATION DILUTION
     Route: 042
     Dates: start: 20210623, end: 20210630
  3. STERILE WATER [Suspect]
     Active Substance: WATER
     Indication: MEDICATION DILUTION
     Route: 042
     Dates: start: 20210623, end: 20210630
  4. PIPTAZ?AFT [Suspect]
     Active Substance: PIPERACILLIN SODIUM\TAZOBACTAM SODIUM
     Indication: OSTEOMYELITIS BACTERIAL
     Dosage: 4.5 G 12?HOURLY, PIPTAZ?AFT
     Route: 042
     Dates: start: 20210603, end: 20210623
  5. BAXTER 0.9% SODIUM CHLORIDE 9G_L INJECTION BP BAG AHB1324 [Suspect]
     Active Substance: SODIUM CHLORIDE
     Indication: MEDICATION DILUTION
     Route: 042
     Dates: start: 20210623, end: 20210630

REACTIONS (1)
  - Neutropenia [Recovering/Resolving]

NARRATIVE: CASE EVENT DATE: 20210618
